FAERS Safety Report 11544164 (Version 2)
Quarter: 2015Q4

REPORT INFORMATION
  Report Type: Spontaneous
  Country: US (occurrence: None)
  Receive Date: 20150922
  Receipt Date: 20151009
  Transmission Date: 20160304
  Serious: Yes (Other)
  Sender: FDA-Public Use
  Company Number: FR-ALSI-201500197

PATIENT
  Sex: Female

DRUGS (2)
  1. OXYGENE [Suspect]
     Active Substance: OXYGEN
     Indication: OXYGEN SATURATION DECREASED
     Dosage: RESPIRATORY
     Route: 055
     Dates: start: 20150901
  2. OXYGEN. [Suspect]
     Active Substance: OXYGEN

REACTIONS (3)
  - Oxygen saturation decreased [None]
  - Product quality issue [None]
  - Device malfunction [None]

NARRATIVE: CASE EVENT DATE: 20150901
